FAERS Safety Report 8762237 (Version 1)
Quarter: 2012Q4

REPORT INFORMATION
  Report Type: 
  Country: DE (occurrence: DE)
  Receive Date: 20120830
  Receipt Date: 20120830
  Transmission Date: 20130627
  Serious: Yes (Other)
  Sender: FDA-Public Use
  Company Number: GXKR2012DE002772

PATIENT

DRUGS (6)
  1. PAMIDRONATE [Suspect]
     Dosage: 90 mg/day
     Route: 042
     Dates: start: 200410, end: 200501
  2. PAMIDRONATE [Suspect]
     Dosage: 60 mg/day
     Route: 042
     Dates: end: 201107
  3. DEXAMETHASONE [Concomitant]
  4. HERCEPTIN ^GENENTECH^ [Concomitant]
  5. ARIMIDEX ^ASTRAZENECA^ [Concomitant]
  6. CAPTOPRIL [Concomitant]

REACTIONS (1)
  - Osteonecrosis of jaw [Recovered/Resolved]
